FAERS Safety Report 23888067 (Version 1)
Quarter: 2024Q2

REPORT INFORMATION
  Report Type: Spontaneous
  Country: US (occurrence: US)
  Receive Date: 20240523
  Receipt Date: 20240523
  Transmission Date: 20240716
  Serious: Yes (Other)
  Sender: FDA-Public Use
  Company Number: US-ABBVIE-5770705

PATIENT
  Age: 84 Year
  Sex: Female

DRUGS (1)
  1. REFRESH PLUS [Suspect]
     Active Substance: CARBOXYMETHYLCELLULOSE SODIUM
     Indication: Product used for unknown indication
     Dosage: PF
     Route: 047

REACTIONS (6)
  - Trabeculectomy [Unknown]
  - Arthritis [Unknown]
  - Macular degeneration [Unknown]
  - Glaucoma [Unknown]
  - Product container issue [Unknown]
  - Corneal irritation [Unknown]
